FAERS Safety Report 8028712-1 (Version None)
Quarter: 2012Q1

REPORT INFORMATION
  Report Type: 
  Country: None (occurrence: None)
  Receive Date: 20120104
  Receipt Date: 20111219
  Transmission Date: 20120608
  Serious: Yes (Other)
  Sender: FDA-Public Use
  Company Number: US-1187813

PATIENT
  Sex: Male
  Weight: 81.6475 kg

DRUGS (2)
  1. BSS [Suspect]
     Indication: CATARACT OPERATION
     Dosage: (INTRAOCULAR)
     Route: 031
     Dates: start: 20110725, end: 20110725
  2. EPINEPHRINE [Suspect]
     Indication: CATARACT OPERATION
     Dosage: (0.2 ML INTRAOCULAR)
     Route: 031
     Dates: start: 20110725, end: 20110725

REACTIONS (4)
  - EYE INFECTION STAPHYLOCOCCAL [None]
  - RETINAL HAEMORRHAGE [None]
  - VISUAL ACUITY REDUCED [None]
  - EYE PAIN [None]
